FAERS Safety Report 5260841-8 (Version None)
Quarter: 2007Q1

REPORT INFORMATION
  Report Type: 
  Country: None (occurrence: None)
  Receive Date: 20070309
  Receipt Date: 20070306
  Transmission Date: 20070707
  Serious: Yes (Other)
  Sender: FDA-Public Use
  Company Number: GB-BRISTOL-MYERS SQUIBB COMPANY-13132733

PATIENT
  Age: 49 Year
  Sex: Female

DRUGS (9)
  1. CARBOPLATIN [Suspect]
     Indication: CHEMOTHERAPY
  2. CISPLATIN [Interacting]
     Indication: CHEMOTHERAPY
  3. ETOPOSIDE [Interacting]
     Indication: CHEMOTHERAPY
  4. TAXOL [Interacting]
     Indication: CHEMOTHERAPY
  5. GEMCITABINE [Interacting]
     Indication: CHEMOTHERAPY
  6. PROPOFOL [Interacting]
     Indication: GENERAL ANAESTHESIA
     Route: 042
  7. FENTANYL [Interacting]
     Indication: GENERAL ANAESTHESIA
  8. MORPHINE [Interacting]
     Indication: GENERAL ANAESTHESIA
  9. PROPRANOLOL [Concomitant]

REACTIONS (4)
  - DRUG INTERACTION [None]
  - ENCEPHALOPATHY [None]
  - GRAND MAL CONVULSION [None]
  - VISUAL DISTURBANCE [None]
